FAERS Safety Report 22053305 (Version 3)
Quarter: 2023Q2

REPORT INFORMATION
  Report Type: Report from Study
  Country: JP (occurrence: JP)
  Receive Date: 20230302
  Receipt Date: 20230404
  Transmission Date: 20230722
  Serious: Yes (Hospitalization)
  Sender: FDA-Public Use
  Company Number: JP-ORPHANEU-2023001170

PATIENT

DRUGS (11)
  1. CYSTADANE [Suspect]
     Active Substance: BETAINE
     Indication: Homocystinuria
     Dosage: 1 GRAM DAILY, BID
     Route: 065
     Dates: start: 20191209, end: 20191226
  2. CYSTADANE [Suspect]
     Active Substance: BETAINE
     Dosage: 1.5 GRAM DAILY, BID
     Route: 065
     Dates: start: 20191227, end: 20200115
  3. CYSTADANE [Suspect]
     Active Substance: BETAINE
     Dosage: 1.5 GRAM DAILY, QID
     Route: 065
     Dates: start: 20200116, end: 20200119
  4. CYSTADANE [Suspect]
     Active Substance: BETAINE
     Dosage: 2 GRAM DAILY, TID
     Route: 065
     Dates: start: 20200120, end: 20200521
  5. CYSTADANE [Suspect]
     Active Substance: BETAINE
     Dosage: 2.5 GRAM DAILY, TID
     Route: 065
     Dates: start: 20200522, end: 20210718
  6. CYSTADANE [Suspect]
     Active Substance: BETAINE
     Dosage: 2.9 GRAM DAILY, TID
     Route: 065
     Dates: start: 20210719, end: 20210908
  7. CYSTADANE [Suspect]
     Active Substance: BETAINE
     Dosage: 3.4 GRAM DAILY, TID
     Route: 065
     Dates: start: 20210909, end: 20211124
  8. CYSTADANE [Suspect]
     Active Substance: BETAINE
     Dosage: 3.7 GRAM DAILY, TID
     Route: 065
     Dates: start: 20211125
  9. PHENOBARBITAL [Concomitant]
     Active Substance: PHENOBARBITAL
     Indication: Disease complication
     Dosage: 0.4 GRAM, QD (BEFORE START OF CYSTADANE)
     Route: 048
     Dates: end: 20210613
  10. FOLIC ACID [Concomitant]
     Active Substance: FOLIC ACID
     Indication: Product used for unknown indication
     Dosage: 0.1 GRAM DAILY, BID
     Route: 048
     Dates: start: 20191209, end: 20200115
  11. FOLIC ACID [Concomitant]
     Active Substance: FOLIC ACID
     Dosage: 0.1 GRAM, QD
     Route: 048
     Dates: start: 20200116

REACTIONS (3)
  - Adenovirus infection [Recovered/Resolved]
  - Constipation [Recovering/Resolving]
  - Off label use [Recovered/Resolved]

NARRATIVE: CASE EVENT DATE: 20200116
